FAERS Safety Report 4841476-5 (Version None)
Quarter: 2005Q4

REPORT INFORMATION
  Report Type: 
  Country: None (occurrence: None)
  Receive Date: 20051130
  Receipt Date: 20050225
  Transmission Date: 20060501
  Serious: Yes (Death)
  Sender: FDA-Public Use
  Company Number: JP-BOEHRINGER INGELHEIM PHARMACEUTICALS, INC.-2005-BP-03706NB

PATIENT
  Age: 88 Year
  Sex: Female

DRUGS (6)
  1. MICARDIS [Suspect]
     Indication: HYPERTENSION
     Route: 048
     Dates: start: 20050201, end: 20050224
  2. NORVASC [Concomitant]
     Route: 048
     Dates: start: 20050201, end: 20050224
  3. ALLOZYM [Concomitant]
     Route: 048
     Dates: start: 20050201, end: 20050224
  4. ALMARL [Concomitant]
     Route: 048
     Dates: start: 20050210, end: 20050224
  5. MARZULENE-S (SODIUM AZULENE SULFONATE L-GLUTAMINE) [Concomitant]
     Route: 048
     Dates: start: 20050210, end: 20050224
  6. OPAPROSMON (LIMAPROST ALFADEX) [Concomitant]
     Route: 048
     Dates: start: 20050201, end: 20050224

REACTIONS (2)
  - BILE DUCT CANCER [None]
  - JAUNDICE [None]
